FAERS Safety Report 5755483-1 (Version None)
Quarter: 2008Q2

REPORT INFORMATION
  Report Type: 
  Country: None (occurrence: None)
  Receive Date: 20080602
  Receipt Date: 20080521
  Transmission Date: 20081010
  Serious: Yes (Hospitalization)
  Sender: FDA-Public Use
  Company Number: FR-SANOFI-SYNTHELABO-A02200801544

PATIENT
  Age: 66 Year
  Sex: Male

DRUGS (2)
  1. GEMZAR [Concomitant]
     Route: 042
  2. ELOXATIN [Suspect]
     Indication: NEOPLASM MALIGNANT
     Route: 041
     Dates: start: 20080507, end: 20080507

REACTIONS (2)
  - HEPATIC FAILURE [None]
  - VENOOCCLUSIVE DISEASE [None]
